FAERS Safety Report 9753592 (Version 3)
Quarter: 2014Q1

REPORT INFORMATION
  Report Type: Spontaneous
  Country: JP (occurrence: JP)
  Receive Date: 20131213
  Receipt Date: 20140207
  Transmission Date: 20141002
  Serious: Yes (Other)
  Sender: FDA-Public Use
  Company Number: PHHY2013JP144111

PATIENT
  Age: 74 Year
  Sex: Female

DRUGS (12)
  1. EXJADE [Suspect]
     Indication: MYELODYSPLASTIC SYNDROME
     Dosage: 500 MG, DAILY
     Route: 048
     Dates: start: 20130919, end: 20131118
  2. VIDAZA [Suspect]
     Dosage: 90 MG, DAILY
     Route: 048
     Dates: start: 20131007
  3. PREDONINE [Concomitant]
     Dosage: UNK UKN, UNK
  4. PARIET [Concomitant]
     Dosage: UNK UKN, UNK
     Route: 048
  5. HYDREA [Concomitant]
     Dosage: UNK UKN, UNK
     Route: 048
  6. BAKTAR [Concomitant]
     Dosage: UNK UKN, UNK
     Route: 048
  7. AMLODIN [Concomitant]
     Dosage: UNK UKN, UNK
     Route: 048
  8. VALTREX [Concomitant]
     Dosage: UNK UKN, UNK
     Route: 048
  9. LASIX [Concomitant]
     Dosage: UNK UKN, UNK
     Route: 048
  10. BAYASPIRIN [Concomitant]
     Dosage: UNK UKN, UNK
     Route: 048
  11. TRAZENTA [Concomitant]
     Dosage: UNK UKN, UNK
     Route: 048
  12. AMARYL [Concomitant]
     Dosage: UNK UKN, UNK
     Route: 048

REACTIONS (7)
  - Gallbladder cancer [Unknown]
  - Pancreatic carcinoma [Unknown]
  - Cholelithiasis [Unknown]
  - Blood alkaline phosphatase increased [Not Recovered/Not Resolved]
  - Gamma-glutamyltransferase increased [Not Recovered/Not Resolved]
  - Aspartate aminotransferase increased [Not Recovered/Not Resolved]
  - Alanine aminotransferase increased [Not Recovered/Not Resolved]
